FAERS Safety Report 21960424 (Version 2)
Quarter: 2023Q4

REPORT INFORMATION
  Report Type: Report from Study
  Country: US (occurrence: US)
  Receive Date: 20230207
  Receipt Date: 20231222
  Transmission Date: 20240110
  Serious: No
  Sender: FDA-Public Use
  Company Number: US-ACADIA PHARMACEUTICALS INC.-ACA-2023-PIM-000176

PATIENT
  Sex: Male

DRUGS (1)
  1. NUPLAZID [Suspect]
     Active Substance: PIMAVANSERIN TARTRATE
     Indication: Parkinson^s disease
     Dosage: 34 MILLIGRAM, QD
     Route: 048
     Dates: start: 20220723

REACTIONS (6)
  - Sleep terror [Unknown]
  - Product dose omission issue [Unknown]
  - Condition aggravated [Unknown]
  - Concussion [Recovered/Resolved]
  - Product dose omission issue [Recovered/Resolved]
  - Confusional state [Unknown]
